FAERS Safety Report 6929768-7 (Version None)
Quarter: 2010Q3

REPORT INFORMATION
  Report Type: 
  Country: None (occurrence: None)
  Receive Date: 20100818
  Receipt Date: 20100803
  Transmission Date: 20110219
  Serious: Yes (Other)
  Sender: FDA-Public Use
  Company Number: PHHY2010US34305

PATIENT
  Sex: Female
  Weight: 70.295 kg

DRUGS (21)
  1. RECLAST [Suspect]
     Indication: OSTEOPOROSIS
     Dosage: 5 MG/ ONCE YEAR
     Route: 042
     Dates: start: 20071201
  2. CELEBREX [Concomitant]
     Indication: OSTEOARTHRITIS
     Dosage: 100 MG, DAILY
  3. LASIX [Concomitant]
     Indication: HYPERTENSION
     Dosage: 40 MG, UNK
     Route: 048
  4. PRAVACHOL [Concomitant]
     Dosage: 20 MG, DAILY
  5. CALCITRIOL [Concomitant]
     Indication: OSTEOMYELITIS
  6. DILANTIN [Concomitant]
     Indication: CONVULSION
  7. PHENOBARBITAL [Concomitant]
     Indication: CONVULSION
     Dosage: 30 MG, BID
  8. LEVOTHYROXINE SODIUM [Concomitant]
  9. BENAZEPRIL [Concomitant]
  10. CYCLOBENZAPRINE [Concomitant]
  11. ACETAMINOPHEN [Concomitant]
     Indication: OSTEOARTHRITIS
  12. CALCIUM WITH VITAMIN D [Concomitant]
  13. LOTENSIN [Concomitant]
     Indication: HYPERTENSION
  14. SYNTHROID [Concomitant]
     Indication: HYPOTHYROIDISM
     Dosage: 175 MG, DAILY
  15. CALCIUM [Concomitant]
     Indication: OSTEOPOROSIS
  16. FLEXERIL [Concomitant]
     Indication: PAIN IN EXTREMITY
  17. ASPIRIN [Concomitant]
  18. LOMOTIL [Concomitant]
     Indication: INFLAMMATORY BOWEL DISEASE
     Dosage: 25 MG, UNK
  19. CARAFATE [Concomitant]
     Indication: INFLAMMATORY BOWEL DISEASE
  20. PREMARIN [Concomitant]
     Indication: INFLAMMATORY BOWEL DISEASE
  21. ANUCORT-HC [Concomitant]
     Indication: HAEMORRHOIDS

REACTIONS (11)
  - ARTHRALGIA [None]
  - CONVULSION [None]
  - DIARRHOEA [None]
  - FALL [None]
  - HYPOCALCAEMIA [None]
  - MUSCLE SPASMS [None]
  - MYALGIA [None]
  - PAIN IN JAW [None]
  - SKULL FRACTURE [None]
  - SPINAL FRACTURE [None]
  - VOMITING [None]
